FAERS Safety Report 7273435-X (Version None)
Quarter: 2011Q1

REPORT INFORMATION
  Report Type: 
  Country: None (occurrence: None)
  Receive Date: 20110203
  Receipt Date: 20110125
  Transmission Date: 20110831
  Serious: Yes (Hospitalization)
  Sender: FDA-Public Use
  Company Number: US-ASTRAZENECA-2011SE04403

PATIENT
  Age: 27391 Day
  Sex: Female

DRUGS (16)
  1. CALCIUM/MAGNESIUM [Concomitant]
     Indication: MINERAL SUPPLEMENTATION
     Dosage: 1500/750 MG
     Route: 048
  2. CIPROFLOXACIN [Concomitant]
     Indication: URINARY TRACT INFECTION
     Route: 048
     Dates: start: 20100813, end: 20100817
  3. LORAZEPAM [Suspect]
     Route: 048
     Dates: start: 20100912
  4. COLACE [Concomitant]
     Indication: CONSTIPATION
     Route: 048
     Dates: start: 20090501
  5. SEROQUEL [Suspect]
     Route: 048
     Dates: start: 20100912
  6. DIMEBON VS PLACEBO [Suspect]
     Indication: DEMENTIA ALZHEIMER'S TYPE
     Dosage: UNKNOWN DOSE THREE TIMES A DAY
     Route: 048
     Dates: start: 20091112, end: 20100815
  7. VITAMIN D [Concomitant]
     Indication: VITAMIN SUPPLEMENTATION
     Route: 048
  8. ENALAPRIL MALEATE [Suspect]
     Route: 048
     Dates: start: 20100912
  9. CITALOPRAM [Concomitant]
     Indication: DEPRESSION
     Route: 048
     Dates: start: 20100810
  10. DONEPEZIL HCL [Concomitant]
     Indication: DEMENTIA ALZHEIMER'S TYPE
     Route: 048
     Dates: start: 20090330
  11. COENZYME Q10 [Concomitant]
     Indication: MEDICAL DIET
     Route: 048
  12. RITALIN [Suspect]
     Route: 048
     Dates: start: 20100912
  13. EFFEXOR [Suspect]
     Route: 048
     Dates: start: 20100912
  14. SIMVASTATIN [Concomitant]
     Indication: HYPERCHOLESTEROLAEMIA
     Route: 048
     Dates: start: 20090301
  15. AMLODIPINE [Concomitant]
     Indication: HYPERTENSION
     Route: 048
     Dates: start: 20090201
  16. MULTI-VITAMIN [Concomitant]
     Indication: VITAMIN SUPPLEMENTATION
     Route: 048

REACTIONS (2)
  - WRONG DRUG ADMINISTERED [None]
  - ATRIAL FIBRILLATION [None]
